FAERS Safety Report 13824709 (Version 1)
Quarter: 2017Q3

REPORT INFORMATION
  Report Type: Spontaneous
  Country: US (occurrence: US)
  Receive Date: 20170802
  Receipt Date: 20170802
  Transmission Date: 20171127
  Serious: Yes (Other)
  Sender: FDA-Public Use
  Company Number: US-ASTELLAS-2017US017331

PATIENT
  Age: 67 Year
  Sex: Male

DRUGS (2)
  1. XTANDI [Suspect]
     Active Substance: ENZALUTAMIDE
     Route: 065
     Dates: start: 201705, end: 201706
  2. XTANDI [Suspect]
     Active Substance: ENZALUTAMIDE
     Indication: PROSTATE CANCER
     Route: 065
     Dates: start: 20170428, end: 20170501

REACTIONS (10)
  - Fall [Unknown]
  - Urinary retention [Unknown]
  - Dysarthria [Unknown]
  - Underdose [Unknown]
  - Meniscus injury [Unknown]
  - Bladder catheterisation [Unknown]
  - Erythema [Recovered/Resolved]
  - Meniscus operation [Unknown]
  - Dysphonia [Unknown]
  - Muscular weakness [Unknown]

NARRATIVE: CASE EVENT DATE: 20170724
